FAERS Safety Report 17766488 (Version 18)
Quarter: 2021Q2

REPORT INFORMATION
  Report Type: Report from Study
  Country: CA (occurrence: CA)
  Receive Date: 20200511
  Receipt Date: 20210521
  Transmission Date: 20210716
  Serious: Yes (Hospitalization, Other)
  Sender: FDA-Public Use
  Company Number: CA-AMGEN-CANSL2020044341

PATIENT
  Age: 52 Year
  Sex: Female
  Weight: 51 kg

DRUGS (15)
  1. MVASI [Suspect]
     Active Substance: BEVACIZUMAB-AWWB
     Dosage: 10 MILLIGRAM/KILOGRAM, Q3WK
     Route: 042
  2. MVASI [Suspect]
     Active Substance: BEVACIZUMAB-AWWB
     Indication: OVARIAN CANCER RECURRENT
     Dosage: 500 MILLIGRAM, Q2WK
     Route: 042
  3. MVASI [Suspect]
     Active Substance: BEVACIZUMAB-AWWB
     Dosage: UNK
     Route: 042
  4. MVASI [Suspect]
     Active Substance: BEVACIZUMAB-AWWB
     Dosage: 500 MILLIGRAM, Q2WK
     Route: 042
     Dates: start: 20200921
  5. MVASI [Suspect]
     Active Substance: BEVACIZUMAB-AWWB
     Dosage: 750 MILLIGRAM, Q3WK
     Route: 042
     Dates: start: 20210104
  6. MVASI [Suspect]
     Active Substance: BEVACIZUMAB-AWWB
     Dosage: 750 MILLIGRAM, Q3WK
     Route: 042
     Dates: start: 20201026
  7. MVASI [Suspect]
     Active Substance: BEVACIZUMAB-AWWB
     Dosage: UNK
     Route: 042
  8. MVASI [Suspect]
     Active Substance: BEVACIZUMAB-AWWB
     Dosage: 500 MILLIGRAM, Q2WK
     Route: 042
  9. MVASI [Suspect]
     Active Substance: BEVACIZUMAB-AWWB
     Dosage: 500 MILLIGRAM, Q2WK
     Route: 042
     Dates: start: 20200810
  10. MVASI [Suspect]
     Active Substance: BEVACIZUMAB-AWWB
     Dosage: 500 MILLIGRAM, Q2WK
     Route: 042
  11. MVASI [Suspect]
     Active Substance: BEVACIZUMAB-AWWB
     Dosage: UNK
     Route: 042
  12. MVASI [Suspect]
     Active Substance: BEVACIZUMAB-AWWB
     Dosage: UNK
     Route: 042
  13. MVASI [Suspect]
     Active Substance: BEVACIZUMAB-AWWB
     Dosage: UNK
     Route: 042
  14. MVASI [Suspect]
     Active Substance: BEVACIZUMAB-AWWB
     Dosage: UNK
     Route: 042
  15. MVASI [Suspect]
     Active Substance: BEVACIZUMAB-AWWB
     Dosage: 750 MILLIGRAM, Q3WK
     Route: 042

REACTIONS (13)
  - Nausea [Not Recovered/Not Resolved]
  - Anaemia [Unknown]
  - Fatigue [Not Recovered/Not Resolved]
  - Vomiting [Unknown]
  - Off label use [Unknown]
  - Thrombocytopenia [Unknown]
  - Blood creatinine increased [Unknown]
  - Hypertension [Unknown]
  - Pulse abnormal [Unknown]
  - Pain [Recovered/Resolved]
  - Decreased appetite [Recovered/Resolved]
  - Diarrhoea [Recovered/Resolved]
  - Anxiety [Recovered/Resolved]

NARRATIVE: CASE EVENT DATE: 20200228
